FAERS Safety Report 5158262-1 (Version None)
Quarter: 2006Q4

REPORT INFORMATION
  Report Type: 
  Country: None (occurrence: None)
  Receive Date: 20061121
  Receipt Date: 20061121
  Transmission Date: 20070319
  Serious: Yes (Hospitalization)
  Sender: FDA-Public Use
  Company Number: None

PATIENT
  Age: 39 Year
  Sex: Female
  Weight: 70.3075 kg

DRUGS (1)
  1. CLINDAMYCIN HCL [Suspect]
     Indication: TOOTH INFECTION
     Dosage: 1 CAPSULE EVERY SIX HOURS PO
     Route: 048
     Dates: start: 20061020, end: 20061031

REACTIONS (2)
  - COLITIS [None]
  - HAEMORRHAGE [None]
